FAERS Safety Report 5298428-3 (Version None)
Quarter: 2007Q2

REPORT INFORMATION
  Report Type: 
  Country: None (occurrence: None)
  Receive Date: 20070416
  Receipt Date: 20070410
  Transmission Date: 20071010
  Serious: Yes (Other)
  Sender: FDA-Public Use
  Company Number: JP-PFIZER INC-2007029186

PATIENT
  Age: 50 Year
  Sex: Female

DRUGS (3)
  1. ZOLOFT [Suspect]
     Indication: DEPRESSION
     Dosage: DAILY DOSE:75MG
     Route: 048
  2. TOLEDOMIN [Concomitant]
     Route: 048
  3. LAXOSELIN [Concomitant]
     Route: 048

REACTIONS (2)
  - AUTISM [None]
  - RETINAL HAEMORRHAGE [None]
